FAERS Safety Report 16300058 (Version 5)
Quarter: 2022Q2

REPORT INFORMATION
  Report Type: Spontaneous
  Country: CA (occurrence: CA)
  Receive Date: 20190510
  Receipt Date: 20220628
  Transmission Date: 20220720
  Serious: Yes (Life-Threatening, Hospitalization, Other)
  Sender: FDA-Public Use
  Company Number: CA-PURDUE PHARMA-CAN-2019-0010024

PATIENT
  Age: 10 Year
  Sex: Male
  Weight: 82 kg

DRUGS (69)
  1. HYDROMORPHONE HYDROCHLORIDE [Suspect]
     Active Substance: HYDROMORPHONE HYDROCHLORIDE
     Indication: Pain
     Dosage: 1.0 MG, Q4H
     Route: 048
  2. HYDROMORPHONE HYDROCHLORIDE [Suspect]
     Active Substance: HYDROMORPHONE HYDROCHLORIDE
     Indication: Femur fracture
     Dosage: 1.0 MG, Q4H
     Route: 048
  3. HYDROMORPHONE HYDROCHLORIDE [Suspect]
     Active Substance: HYDROMORPHONE HYDROCHLORIDE
     Indication: Fracture pain
     Dosage: 1 MILLIGRAM, 6 EVERY 1 DAYS
     Route: 065
  4. HYDROMORPHONE HYDROCHLORIDE [Suspect]
     Active Substance: HYDROMORPHONE HYDROCHLORIDE
     Dosage: 1 MILLIGRAM, 6 EVERY 1 DAYS
     Route: 065
  5. HYDROMORPHONE HYDROCHLORIDE [Suspect]
     Active Substance: HYDROMORPHONE HYDROCHLORIDE
     Dosage: 2 MILLIGRAM, Q4H
     Route: 065
  6. HYDROMORPHONE HYDROCHLORIDE [Suspect]
     Active Substance: HYDROMORPHONE HYDROCHLORIDE
  7. HYDROMORPHONE HYDROCHLORIDE [Suspect]
     Active Substance: HYDROMORPHONE HYDROCHLORIDE
     Dosage: 1 MILLIGRAM, 6 EVERY 1 DAYS
     Route: 065
  8. HYDROMORPHONE HYDROCHLORIDE [Suspect]
     Active Substance: HYDROMORPHONE HYDROCHLORIDE
  9. HYDROMORPHONE HYDROCHLORIDE [Suspect]
     Active Substance: HYDROMORPHONE HYDROCHLORIDE
     Dosage: 1.0 MG, Q4H
     Route: 048
  10. HYDROMORPHONE HYDROCHLORIDE [Suspect]
     Active Substance: HYDROMORPHONE HYDROCHLORIDE
     Dosage: 1 MILLIGRAM, 6 EVERY 1 DAYS
     Route: 065
  11. HYDROMORPHONE HYDROCHLORIDE [Suspect]
     Active Substance: HYDROMORPHONE HYDROCHLORIDE
     Dosage: 1 MILLIGRAM, 6 EVERY 1 DAYS
     Route: 065
  12. HYDROMORPHONE HYDROCHLORIDE [Suspect]
     Active Substance: HYDROMORPHONE HYDROCHLORIDE
     Dosage: 2 MILLIGRAM, Q4H
     Route: 065
  13. IBUPROFEN [Suspect]
     Active Substance: IBUPROFEN
     Indication: Femur fracture
     Dosage: 600.0 MG, Q6H
     Route: 048
  14. IBUPROFEN [Suspect]
     Active Substance: IBUPROFEN
     Indication: Pain
     Dosage: 600 MILLIGRAM, QID
     Route: 065
  15. IBUPROFEN [Suspect]
     Active Substance: IBUPROFEN
     Indication: Fracture pain
     Dosage: 6 MILLIGRAM, QID
     Route: 065
  16. IBUPROFEN [Suspect]
     Active Substance: IBUPROFEN
     Dosage: 600 MILLIGRAM, Q6H
  17. IBUPROFEN [Suspect]
     Active Substance: IBUPROFEN
  18. IBUPROFEN [Suspect]
     Active Substance: IBUPROFEN
     Dosage: 600 MILLIGRAM, Q4H
     Route: 065
  19. IBUPROFEN [Suspect]
     Active Substance: IBUPROFEN
     Dosage: 600 MILLIGRAM, Q6H
  20. IBUPROFEN [Suspect]
     Active Substance: IBUPROFEN
     Dosage: UNK
     Route: 065
  21. DESMOPRESSIN [Suspect]
     Active Substance: DESMOPRESSIN
     Indication: Diabetes insipidus
     Dosage: 1.6 MG, QID
     Route: 048
  22. DESMOPRESSIN [Suspect]
     Active Substance: DESMOPRESSIN
     Dosage: 10 MICROGRAM
     Route: 045
  23. DESMOPRESSIN [Suspect]
     Active Substance: DESMOPRESSIN
     Dosage: 1.6 MILLIGRAM, Q6H
     Route: 048
  24. DESMOPRESSIN [Suspect]
     Active Substance: DESMOPRESSIN
     Dosage: 0.6 MILLIGRAM, PRN
     Route: 065
  25. DESMOPRESSIN [Suspect]
     Active Substance: DESMOPRESSIN
     Dosage: 1.6 MG, QID
     Route: 048
  26. DESMOPRESSIN [Suspect]
     Active Substance: DESMOPRESSIN
     Dosage: 10 MICROGRAM
     Route: 045
  27. DESMOPRESSIN [Suspect]
     Active Substance: DESMOPRESSIN
     Dosage: 1.6 MILLIGRAM, Q6H
     Route: 048
  28. DESMOPRESSIN [Suspect]
     Active Substance: DESMOPRESSIN
     Dosage: 0.6 MILLIGRAM, PRN
     Route: 065
  29. DESMOPRESSIN [Suspect]
     Active Substance: DESMOPRESSIN
     Dosage: 1.6 MG, QID
     Route: 048
  30. DESMOPRESSIN [Suspect]
     Active Substance: DESMOPRESSIN
     Dosage: 10 MICROGRAM
     Route: 045
  31. DESMOPRESSIN [Suspect]
     Active Substance: DESMOPRESSIN
     Dosage: 1.6 MILLIGRAM, Q6H
     Route: 048
  32. DESMOPRESSIN [Suspect]
     Active Substance: DESMOPRESSIN
     Dosage: 0.6 MILLIGRAM, PRN
     Route: 048
  33. DESMOPRESSIN [Suspect]
     Active Substance: DESMOPRESSIN
     Dosage: 0.5 MILLIGRAM, BID
     Route: 048
  34. ACETAMINOPHEN [Concomitant]
     Active Substance: ACETAMINOPHEN
     Indication: Product used for unknown indication
     Dosage: UNK
     Route: 065
  35. HYDROCORTISONE [Concomitant]
     Active Substance: HYDROCORTISONE
     Indication: Diabetes insipidus
     Dosage: UNK
     Route: 065
  36. HYDROCORTISONE [Concomitant]
     Active Substance: HYDROCORTISONE
     Indication: Hyponatraemia
     Dosage: 6 MILLIGRAM, BID
     Route: 048
  37. HYDROCORTISONE [Concomitant]
     Active Substance: HYDROCORTISONE
     Dosage: 15 MILLIGRAM, TID
     Route: 048
  38. HYDROCORTISONE [Concomitant]
     Active Substance: HYDROCORTISONE
     Dosage: 6 MILLIGRAM, BID
     Route: 048
  39. HYDROCORTISONE [Concomitant]
     Active Substance: HYDROCORTISONE
     Dosage: 15 MILLIGRAM, TID
  40. HYDROCORTISONE [Concomitant]
     Active Substance: HYDROCORTISONE
     Dosage: 6 MILLIGRAM, BID
     Route: 048
  41. HYDROCORTISONE [Concomitant]
     Active Substance: HYDROCORTISONE
     Dosage: 15 MILLIGRAM, TID
  42. SENOKOT                            /00571901/ [Concomitant]
     Indication: Product used for unknown indication
     Dosage: UNK
     Route: 065
  43. SENOKOT [Concomitant]
     Active Substance: SENNOSIDES
     Indication: Product used for unknown indication
     Dosage: UNK
     Route: 065
  44. SOMATROPIN [Concomitant]
     Active Substance: SOMATROPIN
     Indication: Product used for unknown indication
     Dosage: 1.3 MILLIGRAM, DAILY
     Route: 058
  45. SOMATROPIN [Concomitant]
     Active Substance: SOMATROPIN
     Dosage: 1.3 MILLIGRAM, DAILY
     Route: 058
  46. SOMATROPIN [Concomitant]
     Active Substance: SOMATROPIN
     Dosage: 1.3 MILLIGRAM, DAILY
     Route: 058
  47. SOMATROPIN [Concomitant]
     Active Substance: SOMATROPIN
     Indication: Diabetes insipidus
     Dosage: 1.3 MILLIGRAM, DAILY
     Route: 058
  48. SOMATROPIN [Concomitant]
     Active Substance: SOMATROPIN
     Dosage: 1.3 MILLIGRAM, DAILY
     Route: 058
  49. SOMATROPIN [Concomitant]
     Active Substance: SOMATROPIN
     Dosage: UNK
     Route: 058
  50. SOMATROPIN [Concomitant]
     Active Substance: SOMATROPIN
     Dosage: 1.3 MILLIGRAM, DAILY
     Route: 058
  51. SOMATROPIN [Concomitant]
     Active Substance: SOMATROPIN
     Dosage: UNK
     Route: 058
  52. DESMOPRESSIN [Concomitant]
     Active Substance: DESMOPRESSIN
     Indication: Diabetes insipidus
     Dosage: 1.6 MILLIGRAM, QID
     Route: 048
  53. DESMOPRESSIN [Concomitant]
     Active Substance: DESMOPRESSIN
     Indication: Blood sodium abnormal
     Dosage: 0.5 MILLIGRAM, BID
     Route: 048
  54. DESMOPRESSIN [Concomitant]
     Active Substance: DESMOPRESSIN
     Dosage: 1.4 MILLIGRAM, DAILY
     Route: 048
  55. DESMOPRESSIN [Concomitant]
     Active Substance: DESMOPRESSIN
     Dosage: 0.6 MILLIGRAM
     Route: 048
  56. DESMOPRESSIN [Concomitant]
     Active Substance: DESMOPRESSIN
     Dosage: 0.1 MILLIGRAM
     Route: 048
  57. DESMOPRESSIN [Concomitant]
     Active Substance: DESMOPRESSIN
     Dosage: 10 MICROGRAM
     Route: 045
  58. DESMOPRESSIN [Concomitant]
     Active Substance: DESMOPRESSIN
     Dosage: 1.6 MILLIGRAM, QID
     Route: 048
  59. DESMOPRESSIN [Concomitant]
     Active Substance: DESMOPRESSIN
     Dosage: 0.5 MILLIGRAM, BID
     Route: 048
  60. DESMOPRESSIN [Concomitant]
     Active Substance: DESMOPRESSIN
     Dosage: 1.4 MILLIGRAM, DAILY
     Route: 048
  61. DESMOPRESSIN [Concomitant]
     Active Substance: DESMOPRESSIN
     Dosage: 0.6 MILLIGRAM
     Route: 048
  62. DESMOPRESSIN [Concomitant]
     Active Substance: DESMOPRESSIN
     Dosage: 0.1 MILLIGRAM
     Route: 048
  63. DESMOPRESSIN [Concomitant]
     Active Substance: DESMOPRESSIN
     Dosage: 10 MICROGRAM
     Route: 045
  64. DESMOPRESSIN [Concomitant]
     Active Substance: DESMOPRESSIN
     Dosage: 1.6 MILLIGRAM, QID
     Route: 048
  65. DESMOPRESSIN [Concomitant]
     Active Substance: DESMOPRESSIN
     Dosage: 0.5 MILLIGRAM, BID
     Route: 048
  66. DESMOPRESSIN [Concomitant]
     Active Substance: DESMOPRESSIN
     Dosage: 1.4 MILLIGRAM, DAILY
     Route: 048
  67. DESMOPRESSIN [Concomitant]
     Active Substance: DESMOPRESSIN
     Dosage: 0.6 MILLIGRAM
     Route: 048
  68. DESMOPRESSIN [Concomitant]
     Active Substance: DESMOPRESSIN
     Dosage: 0.1 MILLIGRAM
     Route: 048
  69. DESMOPRESSIN [Concomitant]
     Active Substance: DESMOPRESSIN
     Dosage: 10 MICROGRAM
     Route: 045

REACTIONS (15)
  - Seizure [Recovered/Resolved]
  - Hyponatraemia [Recovered/Resolved]
  - Drug interaction [Recovered/Resolved]
  - Labelled drug-drug interaction issue [Recovered/Resolved]
  - Apnoea [Recovered/Resolved]
  - Blood sodium decreased [Recovered/Resolved]
  - Bruxism [Recovered/Resolved]
  - Hypernatraemia [Recovered/Resolved]
  - Hypertonia [Recovered/Resolved]
  - Lethargy [Recovered/Resolved]
  - Unresponsive to stimuli [Recovered/Resolved]
  - Apnoeic attack [Recovered/Resolved]
  - Off label use [Recovered/Resolved]
  - Potentiating drug interaction [Recovered/Resolved]
  - Resuscitation [Recovered/Resolved]
